FAERS Safety Report 4553916-X (Version None)
Quarter: 2005Q1

REPORT INFORMATION
  Report Type: 
  Country: None (occurrence: None)
  Receive Date: 20050118
  Receipt Date: 20041025
  Transmission Date: 20050727
  Serious: Yes (Hospitalization, Congenital Anomaly)
  Sender: FDA-Public Use
  Company Number: PHEH2004US11448

PATIENT
  Age: 16 Month
  Sex: Female

DRUGS (1)
  1. FEMARA [Suspect]
     Indication: OVULATION INDUCTION
     Dosage: 2.5 MG, QD
     Route: 064
     Dates: start: 20030901

REACTIONS (4)
  - CHEMOTHERAPY [None]
  - DRUG EXPOSURE DURING PREGNANCY [None]
  - NEUROBLASTOMA [None]
  - SURGERY [None]
